FAERS Safety Report 16958438 (Version 1)
Quarter: 2019Q4

REPORT INFORMATION
  Report Type: Spontaneous
  Country: US (occurrence: US)
  Receive Date: 20191024
  Receipt Date: 20191024
  Transmission Date: 20200122
  Serious: No
  Sender: FDA-Public Use
  Company Number: US-ASTRAZENECA-2019SF37530

PATIENT
  Sex: Female

DRUGS (5)
  1. LEVOMIR [Concomitant]
     Route: 065
  2. JANUMENT XR [Concomitant]
     Route: 065
  3. FARXIGA [Suspect]
     Active Substance: DAPAGLIFLOZIN PROPANEDIOL
     Indication: TYPE 2 DIABETES MELLITUS
     Route: 048
     Dates: start: 201908
  4. VICTOZA [Concomitant]
     Active Substance: LIRAGLUTIDE
     Indication: DIABETES MELLITUS
     Route: 065
  5. NOVOLOG [Concomitant]
     Active Substance: INSULIN ASPART
     Indication: DIABETES MELLITUS
     Route: 065

REACTIONS (7)
  - Fungal infection [Not Recovered/Not Resolved]
  - Ill-defined disorder [Unknown]
  - Dry mouth [Not Recovered/Not Resolved]
  - Cerebral disorder [Unknown]
  - Drug intolerance [Unknown]
  - Weight increased [Not Recovered/Not Resolved]
  - Back pain [Unknown]

NARRATIVE: CASE EVENT DATE: 201908
